FAERS Safety Report 15940912 (Version 3)
Quarter: 2019Q1

REPORT INFORMATION
  Report Type: Spontaneous
  Country: US (occurrence: US)
  Receive Date: 20190208
  Receipt Date: 20190226
  Transmission Date: 20190417
  Serious: Yes (Other)
  Sender: FDA-Public Use
  Company Number: US-ASTRAZENECA-2018SF22287

PATIENT
  Age: 24589 Day
  Sex: Male

DRUGS (19)
  1. AMLODIPINE [Concomitant]
     Active Substance: AMLODIPINE BESYLATE
  2. AMOXICILLIN. [Concomitant]
     Active Substance: AMOXICILLIN
  3. ALPRAZOLAM. [Concomitant]
     Active Substance: ALPRAZOLAM
  4. LASIX [Concomitant]
     Active Substance: FUROSEMIDE
  5. NEXIUM 24HR [Suspect]
     Active Substance: ESOMEPRAZOLE MAGNESIUM
     Route: 048
  6. ZOFRAN [Concomitant]
     Active Substance: ONDANSETRON HYDROCHLORIDE
  7. AZITHROMYCIN ANHYDROUS. [Concomitant]
     Active Substance: AZITHROMYCIN ANHYDROUS
  8. PRILOSEC [Suspect]
     Active Substance: OMEPRAZOLE MAGNESIUM
     Dosage: OMEPRAZOLE
     Route: 048
     Dates: start: 20171123
  9. METAXALONE. [Concomitant]
     Active Substance: METAXALONE
  10. VIAGRA [Concomitant]
     Active Substance: SILDENAFIL CITRATE
  11. PROMETHAZINE [Concomitant]
     Active Substance: PROMETHAZINE\PROMETHAZINE HYDROCHLORIDE
  12. CENTRUM [Concomitant]
     Active Substance: VITAMINS
  13. SEVELAMER [Concomitant]
     Active Substance: SEVELAMER
  14. NASONEX [Concomitant]
     Active Substance: MOMETASONE FUROATE
  15. NEXIUM [Suspect]
     Active Substance: ESOMEPRAZOLE MAGNESIUM
     Route: 048
  16. CALCITROL [Concomitant]
     Active Substance: CALCITRIOL
  17. FERROUS SULFATE. [Concomitant]
     Active Substance: FERROUS SULFATE
  18. ASPIRIN. [Concomitant]
     Active Substance: ASPIRIN
  19. VOLTAREN [Concomitant]
     Active Substance: DICLOFENAC SODIUM

REACTIONS (7)
  - Hyperparathyroidism secondary [Unknown]
  - Renal injury [Unknown]
  - Renal failure [Unknown]
  - End stage renal disease [Unknown]
  - Nephrogenic anaemia [Unknown]
  - Chronic kidney disease [Unknown]
  - Acute kidney injury [Unknown]

NARRATIVE: CASE EVENT DATE: 20171121
